FAERS Safety Report 10683709 (Version 3)
Quarter: 2015Q1

REPORT INFORMATION
  Report Type: Report from Study
  Country: US (occurrence: US)
  Receive Date: 20141230
  Receipt Date: 20150206
  Transmission Date: 20150720
  Serious: Yes (Life-Threatening, Hospitalization)
  Sender: FDA-Public Use
  Company Number: US-ALEXION-A201404884

PATIENT
  Age: 57 Year
  Sex: Male
  Weight: 82 kg

DRUGS (35)
  1. THYMOGLOBULIN [Concomitant]
     Active Substance: LAPINE T-LYMPHOCYTE IMMUNE GLOBULIN
     Indication: IMMUNOSUPPRESSION
     Dosage: 175 MG, SINGLE
     Route: 042
  2. ALPRAZOLAM. [Concomitant]
     Active Substance: ALPRAZOLAM
     Indication: ANXIETY
     Dosage: UNK, SINGLE
     Route: 048
  3. FUROSEMIDE. [Concomitant]
     Active Substance: FUROSEMIDE
     Indication: INTRAOPERATIVE CARE
     Dosage: UNK, SINGLE
     Route: 042
  4. MYCOPHENOLIC ACID. [Concomitant]
     Active Substance: MYCOPHENOLIC ACID
     Indication: IMMUNOSUPPRESSION
     Dosage: 720 MG, BID
     Route: 048
  5. SIMETHICONE [Concomitant]
     Active Substance: DIMETHICONE\SILICON DIOXIDE\SIMETHICONE
     Indication: ROUTINE HEALTH MAINTENANCE
     Dosage: UNK, PRN
     Route: 048
  6. AZITHROMYCIN [Concomitant]
     Active Substance: AZITHROMYCIN ANHYDROUS
     Dosage: 500 MG, QD
     Route: 048
  7. CEFAZOLIN [Concomitant]
     Active Substance: CEFAZOLIN
     Indication: INTRAOPERATIVE CARE
     Dosage: 1 G, SINGLE
     Route: 042
  8. NEOSTIGMINE [Concomitant]
     Active Substance: NEOSTIGMINE
     Indication: INTRAOPERATIVE CARE
     Dosage: UNK, SINGLE
     Route: 042
  9. ALEMTUZUMAB [Concomitant]
     Active Substance: ALEMTUZUMAB
     Indication: IMMUNOSUPPRESSION
     Dosage: 30 MG, SINGLE
     Route: 042
  10. MYCOPHENOLATE MOFETIL. [Concomitant]
     Active Substance: MYCOPHENOLATE MOFETIL
     Dosage: 1000 MG, SINGLE
     Route: 048
  11. TACROLIMUS. [Concomitant]
     Active Substance: TACROLIMUS
     Indication: IMMUNOSUPPRESSION
     Dosage: 4 MG, BID
     Route: 048
  12. ACETAMINOPHEN. [Concomitant]
     Active Substance: ACETAMINOPHEN
     Indication: ROUTINE HEALTH MAINTENANCE
     Dosage: UNK, SINGLE
     Route: 048
  13. GLYCOPYRROLATE                     /00196202/ [Concomitant]
     Indication: INTRAOPERATIVE CARE
     Dosage: UNK, SINGLE
     Route: 042
  14. NYSTATIN. [Concomitant]
     Active Substance: NYSTATIN
     Indication: ROUTINE HEALTH MAINTENANCE
     Dosage: UNK, QID
     Route: 048
  15. PROPOFOL. [Concomitant]
     Active Substance: PROPOFOL
     Indication: INTRAOPERATIVE CARE
     Dosage: UNK, SINGLE
     Route: 042
  16. VALCYTE [Concomitant]
     Active Substance: VALGANCICLOVIR HYDROCHLORIDE
     Indication: PROPHYLAXIS
     Dosage: UNK
     Route: 048
  17. BISACODYL. [Concomitant]
     Active Substance: BISACODYL
     Dosage: UNK
     Route: 054
  18. DOCUSATE [Concomitant]
     Active Substance: DOCUSATE
     Indication: ROUTINE HEALTH MAINTENANCE
     Dosage: UNK, BID
     Route: 042
  19. METOPROLOL [Concomitant]
     Active Substance: METOPROLOL
     Indication: HYPERTENSION
     Dosage: 25 MG, BID
     Route: 048
  20. TACROLIMUS. [Concomitant]
     Active Substance: TACROLIMUS
     Dosage: 4 MG, SINGLE
     Route: 048
  21. AZITHROMYCIN [Concomitant]
     Active Substance: AZITHROMYCIN ANHYDROUS
     Indication: PROPHYLAXIS
     Dosage: 500 MG, SINGLE
     Route: 042
  22. CALCIUM GLUCONATE. [Concomitant]
     Active Substance: CALCIUM GLUCONATE
     Indication: HYPOCALCAEMIA
     Dosage: UNK, QD
     Route: 042
  23. MULTIVITAMIN                       /00097801/ [Concomitant]
     Active Substance: VITAMINS
     Indication: ROUTINE HEALTH MAINTENANCE
     Dosage: UNK, QD
     Route: 048
  24. ECULIZUMAB [Suspect]
     Active Substance: ECULIZUMAB
     Indication: COMPLICATIONS OF TRANSPLANTED KIDNEY
     Dosage: 1200 MG, UNK
     Route: 042
     Dates: start: 20141224, end: 20141224
  25. BISACODYL. [Concomitant]
     Active Substance: BISACODYL
     Indication: CONSTIPATION
     Dosage: UNK, SINGLE
     Route: 048
  26. CISATRACURIUM [Concomitant]
     Active Substance: CISATRACURIUM
     Indication: INTRAOPERATIVE CARE
     Dosage: UNK, SINGLE
     Route: 042
  27. DOCUSATE [Concomitant]
     Active Substance: DOCUSATE
     Dosage: UNK, TID
     Route: 048
  28. MANNITOL. [Concomitant]
     Active Substance: MANNITOL
     Indication: INTRAOPERATIVE CARE
     Dosage: UNK, SINGLE
     Route: 042
  29. ONDANSETRON [Concomitant]
     Active Substance: ONDANSETRON
     Indication: INTRAOPERATIVE CARE
     Dosage: UNK, SINGLE
     Route: 042
  30. PANTOPRAZOLE [Concomitant]
     Active Substance: PANTOPRAZOLE SODIUM
     Indication: ROUTINE HEALTH MAINTENANCE
     Dosage: UNK, QD
     Route: 048
  31. DEXTROSE. [Concomitant]
     Active Substance: DEXTROSE
     Indication: HYPERKALAEMIA
     Dosage: UNK, SINGLE
     Route: 042
  32. METOCLOPRAMIDE. [Concomitant]
     Active Substance: METOCLOPRAMIDE
     Indication: INTRAOPERATIVE CARE
     Dosage: UNK, SINGLE
     Route: 042
  33. MYCOPHENOLATE MOFETIL. [Concomitant]
     Active Substance: MYCOPHENOLATE MOFETIL
     Indication: IMMUNOSUPPRESSION
     Dosage: 1000 MG, QD
     Route: 045
  34. OXYCODONE AND ACETAMINOPHEN [Concomitant]
     Active Substance: ACETAMINOPHEN\OXYCODONE\OXYCODONE HYDROCHLORIDE
     Indication: POSTOPERATIVE CARE
     Dosage: UNK, PRN
     Route: 048
  35. INSULIN [Concomitant]
     Active Substance: INSULIN NOS
     Indication: HYPERKALAEMIA
     Dosage: UNK, SINGLE
     Route: 042

REACTIONS (1)
  - Angioedema [Recovered/Resolved]

NARRATIVE: CASE EVENT DATE: 20141224
